FAERS Safety Report 12212323 (Version 1)
Quarter: 2016Q1

REPORT INFORMATION
  Report Type: Spontaneous
  Country: FR (occurrence: FR)
  Receive Date: 20160325
  Receipt Date: 20160325
  Transmission Date: 20160526
  Serious: Yes (Hospitalization)
  Sender: FDA-Public Use
  Company Number: FR-ASTRAZENECA-2016SE31355

PATIENT
  Age: 3752 Week
  Sex: Male

DRUGS (23)
  1. RITUXIMAB [Concomitant]
     Active Substance: RITUXIMAB
     Route: 058
     Dates: start: 20151130, end: 20151130
  2. CALCIUM FOLINATE [Concomitant]
     Active Substance: LEUCOVORIN CALCIUM
     Route: 042
     Dates: start: 20151201
  3. HYDROCORTISONE. [Concomitant]
     Active Substance: HYDROCORTISONE
     Route: 042
  4. INEXIUM [Suspect]
     Active Substance: ESOMEPRAZOLE
     Route: 048
  5. METHOTREXATE [Suspect]
     Active Substance: METHOTREXATE
     Indication: POST TRANSPLANT LYMPHOPROLIFERATIVE DISORDER
     Dosage: NON AZ PRODUCT
     Route: 040
     Dates: start: 20151130, end: 20151130
  6. ATORVASTATIN [Concomitant]
     Active Substance: ATORVASTATIN
     Route: 048
  7. KARDEGIC [Concomitant]
     Active Substance: ASPIRIN LYSINE
     Route: 048
  8. CYCLOPHOSPHAMIDE. [Concomitant]
     Active Substance: CYCLOPHOSPHAMIDE
     Route: 042
     Dates: start: 20151130
  9. ARACYTINE [Concomitant]
     Active Substance: CYTARABINE
     Route: 053
  10. BACTRIM FORT [Concomitant]
     Active Substance: SULFAMETHOXAZOLE\TRIMETHOPRIM
     Route: 048
  11. PARACETAMOL [Concomitant]
     Active Substance: ACETAMINOPHEN
     Indication: PAIN
     Route: 048
  12. CARDENSIEL [Concomitant]
     Active Substance: BISOPROLOL FUMARATE
     Route: 048
  13. SULFARLEM [Concomitant]
     Active Substance: ANETHOLTRITHION
     Route: 048
  14. SPIRIVA [Concomitant]
     Active Substance: TIOTROPIUM BROMIDE MONOHYDRATE
     Route: 048
  15. SERETIDE [Concomitant]
     Active Substance: FLUTICASONE FUROATE\SALMETEROL XINAFOATE
     Route: 055
  16. SOLU-MEDROL [Concomitant]
     Active Substance: METHYLPREDNISOLONE SODIUM SUCCINATE
     Route: 048
     Dates: start: 20151130
  17. CETIRIZINE [Concomitant]
     Active Substance: CETIRIZINE HYDROCHLORIDE
  18. PREDNISONE. [Concomitant]
     Active Substance: PREDNISONE
     Route: 048
     Dates: start: 20151130
  19. VINCRISTINE [Concomitant]
     Active Substance: VINCRISTINE
     Route: 042
     Dates: start: 20151130
  20. LEDERFOLINE [Concomitant]
     Active Substance: LEUCOVORIN CALCIUM
     Route: 048
  21. ZELITREX [Concomitant]
     Active Substance: VALACYCLOVIR HYDROCHLORIDE
     Route: 048
  22. INSULIN [Concomitant]
     Active Substance: INSULIN NOS
  23. DOXORUBICIN [Concomitant]
     Active Substance: DOXORUBICIN
     Route: 042
     Dates: start: 20151130

REACTIONS (3)
  - Blood creatinine increased [Recovered/Resolved]
  - Drug level increased [Recovered/Resolved]
  - Acute kidney injury [Recovered/Resolved]

NARRATIVE: CASE EVENT DATE: 20151204
